FAERS Safety Report 20314612 (Version 1)
Quarter: 2022Q1

REPORT INFORMATION
  Report Type: Spontaneous
  Country: US (occurrence: None)
  Receive Date: 20220108
  Receipt Date: 20220108
  Transmission Date: 20220423
  Serious: No
  Sender: FDA-Public Use
  Company Number: None

PATIENT
  Sex: Female
  Weight: 78.93 kg

DRUGS (17)
  1. PIQRAY [Suspect]
     Active Substance: ALPELISIB
     Indication: Breast cancer
     Dosage: FREQUENCY : DAILY;?
     Route: 048
     Dates: start: 20210626
  2. ACETAMINOPHEN [Concomitant]
  3. VITAMIN D3 [Concomitant]
     Active Substance: CHOLECALCIFEROL
  4. VITAMIN B12 [Concomitant]
     Active Substance: CYANOCOBALAMIN
  5. FOLIC ACID [Concomitant]
  6. OMEPRAZOLE [Concomitant]
  7. PRED FORTE [Concomitant]
  8. VENLAFAXINE [Concomitant]
  9. FISH OIL [Concomitant]
  10. NORCO [Concomitant]
  11. BIOTIN [Concomitant]
  12. VITAMIN C [Concomitant]
  13. GABAPENTIN [Concomitant]
  14. IMODIUM [Concomitant]
  15. MERFORMIN [Concomitant]
  16. POTASSIUM [Concomitant]
  17. PROCHLORPERAZINE [Concomitant]

REACTIONS (5)
  - Drug intolerance [None]
  - Rash [None]
  - Therapy interrupted [None]
  - Diarrhoea [None]
  - Blood glucose increased [None]
